FAERS Safety Report 7059016-1 (Version None)
Quarter: 2010Q4

REPORT INFORMATION
  Report Type: 
  Country: None (occurrence: None)
  Receive Date: 20101025
  Receipt Date: 20101014
  Transmission Date: 20110411
  Serious: Yes (Hospitalization)
  Sender: FDA-Public Use
  Company Number: US-BIOGENIDEC-2010BI034148

PATIENT
  Age: 65 Year
  Sex: Female

DRUGS (2)
  1. AVONEX [Suspect]
     Indication: MULTIPLE SCLEROSIS
     Route: 030
     Dates: start: 19991011, end: 20070501
  2. AVONEX [Suspect]
     Route: 030
     Dates: start: 20100525

REACTIONS (2)
  - CORONARY ARTERY OCCLUSION [None]
  - HEART RATE INCREASED [None]
